FAERS Safety Report 15605785 (Version 2)
Quarter: 2018Q4

REPORT INFORMATION
  Report Type: Report from Study
  Country: None (occurrence: US)
  Receive Date: 20181112
  Receipt Date: 20181124
  Transmission Date: 20190205
  Serious: Yes (Hospitalization, Other)
  Sender: FDA-Public Use
  Company Number: US-ABBVIE-18K-163-2549986-00

PATIENT
  Age: 55 Year
  Sex: Female

DRUGS (4)
  1. MAVYRET [Suspect]
     Active Substance: GLECAPREVIR\PIBRENTASVIR
     Indication: HEPATITIS C
     Dosage: 100/40MG
     Route: 048
     Dates: start: 201809
  2. HYDROCHLOROTHIAZIDE. [Concomitant]
     Active Substance: HYDROCHLOROTHIAZIDE
     Indication: BLOOD PRESSURE MEASUREMENT
  3. LACTULOSE. [Concomitant]
     Active Substance: LACTULOSE
     Indication: PRODUCT USED FOR UNKNOWN INDICATION
  4. LORTAB [Concomitant]
     Active Substance: ACETAMINOPHEN\HYDROCODONE BITARTRATE
     Indication: NECK PAIN

REACTIONS (6)
  - Dizziness [Unknown]
  - Incision site pain [Recovering/Resolving]
  - Procedural pain [Not Recovered/Not Resolved]
  - Neck pain [Unknown]
  - Heart rate decreased [Recovered/Resolved]
  - Asthenia [Unknown]

NARRATIVE: CASE EVENT DATE: 2018
